FAERS Safety Report 8372497-6 (Version None)
Quarter: 2012Q2

REPORT INFORMATION
  Report Type: 
  Country: None (occurrence: None)
  Receive Date: 20120521
  Receipt Date: 20120510
  Transmission Date: 20120825
  Serious: Yes (Other)
  Sender: FDA-Public Use
  Company Number: PHHY2012DE042173

PATIENT
  Sex: Male

DRUGS (5)
  1. UNSPECIFIED DRUG FOR THE PROSTATE GLAND [Suspect]
     Route: 048
  2. ZOMETA [Suspect]
     Dosage: UNK UKN, EVERY 28 DAYS
  3. SANDOSTATIN LAR [Suspect]
  4. ANTIHYPERTENSIVES [Suspect]
     Route: 048
  5. MICTONORM [Concomitant]
     Indication: MICTURITION URGENCY
     Dosage: 15 MG, DAILY
     Route: 048

REACTIONS (1)
  - CIRCULATORY COLLAPSE [None]
